FAERS Safety Report 23856933 (Version 2)
Quarter: 2024Q2

REPORT INFORMATION
  Report Type: Spontaneous
  Country: BR (occurrence: None)
  Receive Date: 20240515
  Receipt Date: 20240531
  Transmission Date: 20240716
  Serious: Yes (Hospitalization, Other)
  Sender: FDA-Public Use
  Company Number: BR-ROCHE-3558786

PATIENT
  Sex: Male

DRUGS (3)
  1. OCREVUS [Suspect]
     Active Substance: OCRELIZUMAB
     Indication: Primary progressive multiple sclerosis
     Route: 065
     Dates: start: 202208
  2. BACLOFEN [Concomitant]
     Active Substance: BACLOFEN
  3. CHOLECALCIFEROL [Concomitant]
     Active Substance: CHOLECALCIFEROL

REACTIONS (8)
  - Fournier^s gangrene [Recovering/Resolving]
  - Acute kidney injury [Recovering/Resolving]
  - Hypoventilation [Recovering/Resolving]
  - Urinary tract infection [Recovering/Resolving]
  - Intestinal obstruction [Recovering/Resolving]
  - Electrolyte imbalance [Recovering/Resolving]
  - Staphylococcus test positive [Recovering/Resolving]
  - Hypogammaglobulinaemia [Recovering/Resolving]

NARRATIVE: CASE EVENT DATE: 20240326
